FAERS Safety Report 10032187 (Version 5)
Quarter: 2014Q2

REPORT INFORMATION
  Report Type: Report from Study
  Country: FR (occurrence: FR)
  Receive Date: 20140324
  Receipt Date: 20140620
  Transmission Date: 20141212
  Serious: Yes (Death, Life-Threatening, Hospitalization)
  Sender: FDA-Public Use
  Company Number: FR-PFIZER INC-2014070766

PATIENT
  Age: 61 Year
  Sex: Male
  Weight: 75 kg

DRUGS (4)
  1. CRIZOTINIB [Suspect]
     Indication: INFLAMMATORY MYOFIBROBLASTIC TUMOUR
     Dosage: 250 MG, 2X/DAY
     Route: 048
     Dates: start: 20131223
  2. OMEPRAZOLE [Concomitant]
     Dosage: 20, 1X/DAY
     Route: 048
  3. JANUMET [Concomitant]
     Indication: DIABETES MELLITUS
     Dosage: 1 DF, 2X/DAY
     Route: 048
  4. SPIRIVA [Concomitant]
     Indication: BRONCHITIS CHRONIC
     Dosage: 1 DF, 1X/DAY
     Route: 055

REACTIONS (1)
  - Pyopneumothorax [Fatal]
